FAERS Safety Report 4567833-2 (Version None)
Quarter: 2005Q1

REPORT INFORMATION
  Report Type: 
  Country: None (occurrence: None)
  Receive Date: 20050128
  Receipt Date: 20040906
  Transmission Date: 20050727
  Serious: Yes (Hospitalization)
  Sender: FDA-Public Use
  Company Number: GXKR2004GB00671

PATIENT
  Age: 59 Year
  Sex: Male

DRUGS (1)
  1. LISINOPRIL [Suspect]
     Indication: HYPERTENSION

REACTIONS (4)
  - COUGH [None]
  - POST PROCEDURAL COMPLICATION [None]
  - THERAPY NON-RESPONDER [None]
  - WOUND DEHISCENCE [None]
